FAERS Safety Report 6706894-9 (Version None)
Quarter: 2010Q2

REPORT INFORMATION
  Report Type: 
  Country: None (occurrence: None)
  Receive Date: 20100430
  Receipt Date: 20100430
  Transmission Date: 20101027
  Serious: Yes (Death)
  Sender: FDA-Public Use
  Company Number: None

PATIENT
  Age: 58 Year
  Sex: Male

DRUGS (1)
  1. ETANERCEPT 50 MG AMGEN [Suspect]
     Indication: PSORIASIS
     Dosage: 50 MG WEEKLY SQ
     Route: 058

REACTIONS (3)
  - ACUTE PULMONARY HISTOPLASMOSIS [None]
  - CARDIAC ARREST [None]
  - DRUG INEFFECTIVE [None]
